FAERS Safety Report 5290477-4 (Version None)
Quarter: 2007Q2

REPORT INFORMATION
  Report Type: 
  Country: None (occurrence: None)
  Receive Date: 20070405
  Receipt Date: 20070405
  Transmission Date: 20071010
  Serious: Yes (Death)
  Sender: FDA-Public Use
  Company Number: None

PATIENT
  Sex: Male
  Weight: 176.9028 kg

DRUGS (1)
  1. LEVAQUIN [Suspect]
     Indication: BRONCHITIS
     Dosage: 750 MG DAILY ORAL
     Route: 048
     Dates: start: 20070215

REACTIONS (8)
  - ELECTROENCEPHALOGRAM ABNORMAL [None]
  - ENDOTRACHEAL INTUBATION COMPLICATION [None]
  - LARYNGEAL OEDEMA [None]
  - LOSS OF CONSCIOUSNESS [None]
  - PUPIL FIXED [None]
  - RESPIRATORY ARREST [None]
  - SWELLING FACE [None]
  - SWOLLEN TONGUE [None]
